FAERS Safety Report 9012116 (Version 1)
Quarter: 2013Q1

REPORT INFORMATION
  Report Type: Spontaneous
  Country: US (occurrence: US)
  Receive Date: 20130114
  Receipt Date: 20130114
  Transmission Date: 20140127
  Serious: Yes (Death)
  Sender: FDA-Public Use
  Company Number: US-PFIZER INC-2013010806

PATIENT
  Age: 36 Year
  Sex: Male

DRUGS (1)
  1. SUTENT [Suspect]
     Indication: BRAIN NEOPLASM MALIGNANT
     Dosage: 25 MG, UNK
     Dates: start: 20120615

REACTIONS (3)
  - Disease progression [Fatal]
  - Brain neoplasm malignant [Fatal]
  - Off label use [Unknown]
